FAERS Safety Report 12690027 (Version 3)
Quarter: 2016Q3

REPORT INFORMATION
  Report Type: Report from Study
  Country: US (occurrence: US)
  Receive Date: 20160826
  Receipt Date: 20160928
  Transmission Date: 20161109
  Serious: Yes (Other)
  Sender: FDA-Public Use
  Company Number: US-JNJFOC-20160819560

PATIENT
  Age: 72 Year
  Sex: Male

DRUGS (7)
  1. CARVEDILOL. [Concomitant]
     Active Substance: CARVEDILOL
  2. CYANOCOBALAMINE [Concomitant]
     Active Substance: CYANOCOBALAMIN
  3. ALLOPURINOL. [Concomitant]
     Active Substance: ALLOPURINOL
  4. KCL [Concomitant]
     Active Substance: POTASSIUM CHLORIDE
  5. IMBRUVICA [Suspect]
     Active Substance: IBRUTINIB
     Indication: MANTLE CELL LYMPHOMA
     Route: 048
     Dates: start: 20160621, end: 201607
  6. IMBRUVICA [Suspect]
     Active Substance: IBRUTINIB
     Indication: MANTLE CELL LYMPHOMA
     Route: 048
     Dates: start: 20160708
  7. IMBRUVICA [Suspect]
     Active Substance: IBRUTINIB
     Indication: MANTLE CELL LYMPHOMA
     Route: 048
     Dates: start: 20160701

REACTIONS (6)
  - Dry mouth [Unknown]
  - Laboratory test abnormal [Unknown]
  - Platelet count abnormal [Unknown]
  - Dysgeusia [Not Recovered/Not Resolved]
  - Rash [Recovered/Resolved]
  - Hepatic cirrhosis [Unknown]

NARRATIVE: CASE EVENT DATE: 20160628
